FAERS Safety Report 24717081 (Version 3)
Quarter: 2025Q3

REPORT INFORMATION
  Report Type: Spontaneous
  Country: US (occurrence: US)
  Receive Date: 20241210
  Receipt Date: 20250810
  Transmission Date: 20251021
  Serious: No
  Sender: ALEXION PHARMACEUTICALS
  Company Number: US-AstraZeneca-CH-00763745A

PATIENT

DRUGS (4)
  1. VOYDEYA [Suspect]
     Active Substance: DANICOPAN
     Indication: Paroxysmal nocturnal haemoglobinuria
  2. VOYDEYA [Suspect]
     Active Substance: DANICOPAN
     Indication: Extravascular haemolysis
  3. ULTOMIRIS [Suspect]
     Active Substance: RAVULIZUMAB-CWVZ
     Indication: Paroxysmal nocturnal haemoglobinuria
  4. ULTOMIRIS [Suspect]
     Active Substance: RAVULIZUMAB-CWVZ
     Indication: Extravascular haemolysis

REACTIONS (2)
  - Haemoglobin decreased [Recovering/Resolving]
  - Fatigue [Recovering/Resolving]
